FAERS Safety Report 7987411-2 (Version None)
Quarter: 2011Q4

REPORT INFORMATION
  Report Type: 
  Country: None (occurrence: None)
  Receive Date: 20111216
  Receipt Date: 20110406
  Transmission Date: 20120403
  Serious: No
  Sender: FDA-Public Use
  Company Number: US-BRISTOL-MYERS SQUIBB COMPANY-15658800

PATIENT
  Sex: Female

DRUGS (3)
  1. ABILIFY [Suspect]
     Indication: AFFECTIVE DISORDER
  2. ABILIFY [Suspect]
     Indication: GENERALISED ANXIETY DISORDER
  3. KLONOPIN [Suspect]

REACTIONS (1)
  - NYSTAGMUS [None]
